FAERS Safety Report 4618132-1 (Version None)
Quarter: 2005Q1

REPORT INFORMATION
  Report Type: 
  Country: None (occurrence: None)
  Receive Date: 20050322
  Receipt Date: 20050207
  Transmission Date: 20050727
  Serious: Yes (Life-Threatening)
  Sender: FDA-Public Use
  Company Number: A03200500397

PATIENT
  Age: 56 Year
  Sex: Male

DRUGS (5)
  1. UROXATRAL [Suspect]
     Indication: INCONTINENCE
     Dosage: 10 MG ONCE-ORAL
     Route: 048
  2. UROXATRAL [Suspect]
     Indication: TERMINAL DRIBBLING
     Dosage: 10 MG ONCE-ORAL
     Route: 048
  3. PSEUDOEPHEDRINE HCL [Concomitant]
  4. ESOMEPRAZOLE [Concomitant]
  5. ZOLPIDEM TARTRATE [Concomitant]

REACTIONS (4)
  - ANGIONEUROTIC OEDEMA [None]
  - BURNING SENSATION [None]
  - DYSPNOEA [None]
  - RASH [None]
